FAERS Safety Report 6217868-9 (Version None)
Quarter: 2009Q2

REPORT INFORMATION
  Report Type: 
  Country: None (occurrence: None)
  Receive Date: 20090608
  Receipt Date: 20090527
  Transmission Date: 20091009
  Serious: Yes (Hospitalization)
  Sender: FDA-Public Use
  Company Number: BR-ROCHE-635505

PATIENT
  Sex: Male

DRUGS (1)
  1. ROACUTAN [Suspect]
     Indication: ACNE
     Route: 048
     Dates: start: 20080901, end: 20090501

REACTIONS (4)
  - ABDOMINAL PAIN UPPER [None]
  - APPENDICITIS [None]
  - DRY EYE [None]
  - LIP DRY [None]
